FAERS Safety Report 5494959-1 (Version None)
Quarter: 2007Q4

REPORT INFORMATION
  Report Type: 
  Country: None (occurrence: None)
  Receive Date: 20071024
  Receipt Date: 20071023
  Transmission Date: 20080405
  Serious: Yes (Other)
  Sender: FDA-Public Use
  Company Number: B0489533A

PATIENT
  Age: 5 Month
  Sex: Female
  Weight: 4 kg

DRUGS (1)
  1. FLOLAN [Suspect]
     Indication: PULMONARY HYPERTENSION
     Route: 042
     Dates: start: 20070905

REACTIONS (1)
  - PULMONARY HAEMORRHAGE [None]
